FAERS Safety Report 25432976 (Version 1)
Quarter: 2025Q2

REPORT INFORMATION
  Report Type: Spontaneous
  Country: US (occurrence: None)
  Receive Date: 20250613
  Receipt Date: 20250613
  Transmission Date: 20250717
  Serious: No
  Sender: MDD OPERATIONS
  Company Number: US-MDD US Operations-MDD202405-001760

PATIENT
  Age: 57 Year
  Sex: Male
  Weight: 88.9 kg

DRUGS (14)
  1. APOKYN [Suspect]
     Active Substance: APOMORPHINE HYDROCHLORIDE
     Indication: Parkinson^s disease
  2. GOCOVRI [Suspect]
     Active Substance: AMANTADINE
     Indication: Parkinson^s disease
     Route: 048
     Dates: start: 20240427
  3. GOCOVRI [Suspect]
     Active Substance: AMANTADINE
     Indication: Dyskinesia
  4. RYTARY [Concomitant]
     Active Substance: CARBIDOPA\LEVODOPA
  5. RYTARY [Concomitant]
     Active Substance: CARBIDOPA\LEVODOPA
  6. ALTACE [Concomitant]
     Active Substance: RAMIPRIL
  7. ALTACE [Concomitant]
     Active Substance: RAMIPRIL
  8. SYNTHROID [Concomitant]
     Active Substance: LEVOTHYROXINE SODIUM
  9. CLONAZEPAM [Concomitant]
     Active Substance: CLONAZEPAM
  10. GOCOVRI [Concomitant]
     Active Substance: AMANTADINE
  11. XARELTO [Concomitant]
     Active Substance: RIVAROXABAN
  12. PRILOSEC [Concomitant]
     Active Substance: OMEPRAZOLE MAGNESIUM
  13. CARBIDOPA\LEVODOPA [Concomitant]
     Active Substance: CARBIDOPA\LEVODOPA
  14. ZOLOFT [Concomitant]
     Active Substance: SERTRALINE HYDROCHLORIDE

REACTIONS (4)
  - Dry mouth [Unknown]
  - Blood pressure decreased [Unknown]
  - Dizziness [Unknown]
  - Dizziness postural [Unknown]

NARRATIVE: CASE EVENT DATE: 20240101
